FAERS Safety Report 26181769 (Version 2)
Quarter: 2025Q4

REPORT INFORMATION
  Report Type: Spontaneous
  Country: NP (occurrence: NP)
  Receive Date: 20251221
  Receipt Date: 20251226
  Transmission Date: 20260118
  Serious: Yes (Life-Threatening, Hospitalization)
  Sender: MACLEODS
  Company Number: NP-MACLEODS PHARMA-MAC2025057116

PATIENT

DRUGS (4)
  1. METFORMIN HYDROCHLORIDE [Suspect]
     Active Substance: METFORMIN HYDROCHLORIDE
     Indication: Type 2 diabetes mellitus
     Dosage: INGESTED AN ESTIMATED 40 G OF METFORMIN, ROUGHLY 50 TABLETS AROUND 30 TO 40 MIN
     Route: 048
  2. METFORMIN HYDROCHLORIDE [Suspect]
     Active Substance: METFORMIN HYDROCHLORIDE
     Route: 065
  3. OLANZAPINE [Concomitant]
     Active Substance: OLANZAPINE
     Indication: Major depression
     Route: 065
  4. FLUOXETINE [Concomitant]
     Active Substance: FLUOXETINE HYDROCHLORIDE
     Indication: Major depression
     Route: 065

REACTIONS (7)
  - Hypocalcaemia [Recovered/Resolved]
  - Acute kidney injury [Recovered/Resolved]
  - Respiratory alkalosis [Recovered/Resolved]
  - Lactic acidosis [Recovered/Resolved]
  - Metabolic acidosis [Recovered/Resolved]
  - Hypoglycaemia [Recovered/Resolved]
  - Intentional overdose [Recovered/Resolved]
